FAERS Safety Report 10120479 (Version 1)
Quarter: 2014Q2

REPORT INFORMATION
  Report Type: Spontaneous
  Country: JP (occurrence: JP)
  Receive Date: 20140425
  Receipt Date: 20140425
  Transmission Date: 20141212
  Serious: Yes (Other)
  Sender: FDA-Public Use
  Company Number: JP-PFIZER INC-2014114443

PATIENT
  Sex: Male

DRUGS (2)
  1. LYRICA [Suspect]
     Dosage: UNK
     Route: 048
  2. LYRICA [Suspect]
     Dosage: 50 MG/DAY IN THE NIGHT TIME
     Route: 048

REACTIONS (3)
  - Hypothermia [Unknown]
  - Abdominal discomfort [Unknown]
  - Nightmare [Unknown]
